FAERS Safety Report 7053447-1 (Version None)
Quarter: 2010Q4

REPORT INFORMATION
  Report Type: 
  Country: None (occurrence: None)
  Receive Date: 20101020
  Receipt Date: 20100705
  Transmission Date: 20110411
  Serious: Yes (Other)
  Sender: FDA-Public Use
  Company Number: NL-US-EMD SERONO, INC.-7022803

PATIENT
  Sex: Female
  Weight: 75 kg

DRUGS (2)
  1. REBIF [Suspect]
     Indication: MULTIPLE SCLEROSIS
     Route: 058
     Dates: start: 20081001
  2. CYPROTERON/ETHINYLESTRADIOL [Concomitant]
     Indication: CONTRACEPTION
     Dosage: 2MG/35UG
     Route: 048

REACTIONS (2)
  - MIGRAINE [None]
  - PNEUMONIA [None]
